FAERS Safety Report 10785101 (Version 1)
Quarter: 2015Q1

REPORT INFORMATION
  Report Type: Spontaneous
  Country: US (occurrence: None)
  Receive Date: 20150209
  Receipt Date: 20150209
  Transmission Date: 20150721
  Serious: Yes (Hospitalization, Other)
  Sender: FDA-Public Use
  Company Number: ADR-2015-00274

PATIENT
  Age: 59 Year
  Sex: Female

DRUGS (1)
  1. BACLOFEN INTRATHECAL [Suspect]
     Active Substance: BACLOFEN
     Indication: MUSCLE SPASTICITY

REACTIONS (9)
  - Cystitis [None]
  - Urinary tract infection [None]
  - Post procedural complication [None]
  - Feeling cold [None]
  - Hyperhidrosis [None]
  - Abnormal behaviour [None]
  - Device related infection [None]
  - Feeling abnormal [None]
  - Hallucination, visual [None]

NARRATIVE: CASE EVENT DATE: 20150102
